FAERS Safety Report 5702807-7 (Version None)
Quarter: 2008Q2

REPORT INFORMATION
  Report Type: 
  Country: None (occurrence: None)
  Receive Date: 20080411
  Receipt Date: 20080401
  Transmission Date: 20081010
  Serious: Yes (Hospitalization)
  Sender: FDA-Public Use
  Company Number: US-ELI_LILLY_AND_COMPANY-US200804000327

PATIENT
  Sex: Female
  Weight: 83.9 kg

DRUGS (14)
  1. BYETTA [Suspect]
     Dosage: 5 UG, 2/D
     Route: 058
     Dates: start: 20070101, end: 20070101
  2. BYETTA [Suspect]
     Dosage: 10 UG, 2/D
     Route: 058
     Dates: start: 20070101, end: 20080330
  3. BYETTA [Suspect]
     Dosage: 10 UG, 2/D
     Route: 058
     Dates: start: 20080331
  4. PREVACID [Concomitant]
     Indication: STOMACH DISCOMFORT
     Dosage: 30 MG, DAILY (1/D)
     Route: 048
     Dates: start: 20070101
  5. MOBIC [Concomitant]
     Indication: OSTEOARTHRITIS
     Dosage: 7.5 MG, DAILY (1/D)
     Route: 048
     Dates: start: 20070101
  6. TYLENOL (CAPLET) [Concomitant]
     Indication: OSTEOARTHRITIS
     Dosage: 650 MG, 2/D
     Route: 048
  7. DETROL [Concomitant]
     Indication: URINARY INCONTINENCE
     Dosage: 4 MG, DAILY (1/D)
     Route: 048
     Dates: start: 20050101
  8. LEXAPRO [Concomitant]
     Indication: ANXIETY
     Dosage: 20 MG, DAILY (1/D)
     Route: 048
  9. NITROGLYCERIN [Concomitant]
     Indication: CHEST DISCOMFORT
     Dosage: 0.4 MG, AS NEEDED
     Route: 060
  10. NITROGLYCERIN [Concomitant]
     Route: 042
     Dates: start: 20080330, end: 20080301
  11. MIRALAX [Concomitant]
     Indication: CONSTIPATION
  12. MIACALCIN [Concomitant]
     Indication: OSTEOPOROSIS
     Route: 055
     Dates: start: 20050101
  13. TOPROL-XL [Concomitant]
     Indication: HYPERTENSION
     Dosage: 25 MG, DAILY (1/D)
     Route: 048
     Dates: start: 20050101
  14. ANTI-DIABETICS [Concomitant]
     Dosage: 100 MG, DAILY (1/D)
     Route: 048
     Dates: start: 20070101

REACTIONS (4)
  - CHEST DISCOMFORT [None]
  - CONVULSION [None]
  - FEELING ABNORMAL [None]
  - WEIGHT DECREASED [None]
